FAERS Safety Report 6581099-3 (Version None)
Quarter: 2010Q1

REPORT INFORMATION
  Report Type: 
  Country: None (occurrence: None)
  Receive Date: 20100215
  Receipt Date: 20100203
  Transmission Date: 20100710
  Serious: Yes (Hospitalization, Other)
  Sender: FDA-Public Use
  Company Number: PHFR2008IE01069

PATIENT
  Sex: Male

DRUGS (8)
  1. CLOZARIL [Suspect]
     Indication: SCHIZOPHRENIA
     Dosage: 350 MG DAILY
     Route: 048
     Dates: start: 19940901
  2. CLOZARIL [Suspect]
     Dosage: UNK
     Route: 048
     Dates: start: 20090415, end: 20090806
  3. CLOZARIL [Suspect]
     Dosage: 150+175MG/DAY
     Route: 048
     Dates: start: 20091210, end: 20100129
  4. CITALOPRAM [Concomitant]
     Indication: DEPRESSED MOOD
     Dosage: 40 MG DAILY
     Dates: start: 20060101
  5. CITALOPRAM [Concomitant]
     Dosage: 20 MG, QD
     Dates: start: 20090730, end: 20090804
  6. OLANZAPINE [Concomitant]
  7. CIPRAMIL [Concomitant]
  8. HYOSCINE HBR HYT [Concomitant]
     Dosage: 300 MCG

REACTIONS (16)
  - COLD SWEAT [None]
  - COMBINED IMMUNODEFICIENCY [None]
  - GENERAL PHYSICAL CONDITION ABNORMAL [None]
  - HEADACHE [None]
  - HYPOGAMMAGLOBULINAEMIA [None]
  - LEUKOPENIA [None]
  - LOWER RESPIRATORY TRACT INFECTION [None]
  - MENTAL DISORDER [None]
  - NASOPHARYNGITIS [None]
  - NEUTROPENIA [None]
  - NEUTROPHIL COUNT INCREASED [None]
  - PNEUMONIA [None]
  - RASH [None]
  - VOMITING [None]
  - WHITE BLOOD CELL COUNT INCREASED [None]
  - WITHDRAWAL SYNDROME [None]
